FAERS Safety Report 23057848 (Version 1)
Quarter: 2023Q4

REPORT INFORMATION
  Report Type: Spontaneous
  Country: IT (occurrence: IT)
  Receive Date: 20231012
  Receipt Date: 20231012
  Transmission Date: 20240110
  Serious: Yes (Life-Threatening, Other)
  Sender: FDA-Public Use
  Company Number: IT-ROCHE-3436756

PATIENT
  Age: 34 Year
  Sex: Male

DRUGS (4)
  1. RIVOTRIL [Suspect]
     Active Substance: CLONAZEPAM
     Indication: Suicide attempt
     Dosage: 2.5 MG/ML
     Route: 065
     Dates: start: 20230816, end: 20230816
  2. RIVOTRIL [Suspect]
     Active Substance: CLONAZEPAM
     Indication: Drug abuse
  3. DIAZEPAM [Suspect]
     Active Substance: DIAZEPAM
     Indication: Suicide attempt
     Dosage: 5 MG/ML
     Route: 065
     Dates: start: 20230816, end: 20230816
  4. DIAZEPAM [Suspect]
     Active Substance: DIAZEPAM
     Indication: Drug abuse

REACTIONS (3)
  - Suicide attempt [Recovered/Resolved]
  - Drug abuse [Unknown]
  - Toxicity to various agents [Recovered/Resolved]

NARRATIVE: CASE EVENT DATE: 20230816
